FAERS Safety Report 25220184 (Version 2)
Quarter: 2025Q2

REPORT INFORMATION
  Report Type: Report from Study
  Country: TW (occurrence: TW)
  Receive Date: 20250421
  Receipt Date: 20250520
  Transmission Date: 20250716
  Serious: Yes (Other)
  Sender: BIOGEN
  Company Number: TW-BIOGEN-2025BI01308014

PATIENT
  Age: 39 Year
  Sex: Male

DRUGS (1)
  1. SPINRAZA [Suspect]
     Active Substance: NUSINERSEN
     Indication: Spinal muscular atrophy
     Dosage: 4 LOADING DOSES ON DAYS 0, 14, 28 AND 63. MAINTENANCE DOSE ADMINISTERED ONCE EVERY 4 MONTHS THERE...
     Route: 050
     Dates: start: 20250313

REACTIONS (9)
  - Paraplegia [Recovered/Resolved]
  - Hyperhidrosis [Recovered/Resolved]
  - Musculoskeletal stiffness [Recovered/Resolved]
  - Tremor [Recovered/Resolved]
  - Hypoaesthesia [Not Recovered/Not Resolved]
  - Muscle tightness [Recovered/Resolved]
  - Cardiovascular symptom [Recovered/Resolved]
  - Headache [Recovered/Resolved]
  - Rash [Not Recovered/Not Resolved]

NARRATIVE: CASE EVENT DATE: 20250410
